FAERS Safety Report 8106856-3 (Version None)
Quarter: 2011Q4

REPORT INFORMATION
  Report Type: 
  Country: None (occurrence: None)
  Receive Date: 20111222
  Receipt Date: 20111115
  Transmission Date: 20120403
  Serious: Yes (Other)
  Sender: FDA-Public Use
  Company Number: UTC-011512

PATIENT
  Age: 64 Year
  Sex: Male
  Weight: 104.5 kg

DRUGS (1)
  1. TYVASO [Suspect]
     Indication: COR PULMONALE CHRONIC
     Dosage: 18-54 MICROGRAMS (4 IN 1 D),INHALATION
     Route: 055
     Dates: start: 20101027

REACTIONS (2)
  - TREATMENT NONCOMPLIANCE [None]
  - NEOPLASM MALIGNANT [None]
